FAERS Safety Report 7680659 (Version 2)
Quarter: 2015Q1

REPORT INFORMATION
  Report Type: Spontaneous
  Country: ES (occurrence: ES)
  Receive Date: 20101123
  Receipt Date: 20150128
  Transmission Date: 20150721
  Serious: Yes (Other)
  Sender: FDA-Public Use
  Company Number: ES-JNJFOC-20101105805

PATIENT
  Sex: Male
  Weight: 85 kg

DRUGS (1)
  1. CONCERTA [Suspect]
     Active Substance: METHYLPHENIDATE HYDROCHLORIDE
     Indication: PSYCHOMOTOR HYPERACTIVITY
     Route: 048
     Dates: start: 2006, end: 2010

REACTIONS (5)
  - Drug administration error [Unknown]
  - Growth retardation [Unknown]
  - Weight increased [Not Recovered/Not Resolved]
  - Inadequate diet [Unknown]
  - Food craving [Unknown]

NARRATIVE: CASE EVENT DATE: 2006
